FAERS Safety Report 7911216 (Version 5)
Quarter: 2020Q3

REPORT INFORMATION
  Report Type: Report from Study
  Country: US (occurrence: US)
  Receive Date: 20110422
  Receipt Date: 20121003
  Transmission Date: 20201104
  Serious: Yes (Hospitalization)
  Sender: FDA-Public Use
  Company Number: US-JNJFOC-20110405379

PATIENT
  Age: 60 Year
  Sex: Female
  Weight: 104.9 kg

DRUGS (2)
  1. USTEKINUMAB [Suspect]
     Active Substance: USTEKINUMAB
     Indication: SARCOIDOSIS
     Route: 058
     Dates: start: 20110311
  2. USTEKINUMAB [Suspect]
     Active Substance: USTEKINUMAB
     Indication: SARCOIDOSIS
     Route: 058
     Dates: start: 20100924

REACTIONS (3)
  - Diarrhoea [Recovering/Resolving]
  - Oesophageal candidiasis [Not Recovered/Not Resolved]
  - Musculoskeletal pain [Recovering/Resolving]

NARRATIVE: CASE EVENT DATE: 20110315
